FAERS Safety Report 13325905 (Version 2)
Quarter: 2017Q1

REPORT INFORMATION
  Report Type: Report from Study
  Country: US (occurrence: US)
  Receive Date: 20170310
  Receipt Date: 20170321
  Transmission Date: 20170428
  Serious: Yes (Hospitalization, Other)
  Sender: FDA-Public Use
  Company Number: US-REGENERON PHARMACEUTICALS, INC.-2017-10567

PATIENT

DRUGS (12)
  1. PROAIR HFA [Concomitant]
     Active Substance: ALBUTEROL SULFATE
     Indication: ASTHMA
     Dosage: 2-4 PUFFS, PRN
     Route: 055
     Dates: start: 2013
  2. TOUJEO [Suspect]
     Active Substance: INSULIN GLARGINE
     Indication: DIABETES MELLITUS
     Dosage: 30 OTHER
     Route: 030
     Dates: start: 201604
  3. ATORVASTATIN [Suspect]
     Active Substance: ATORVASTATIN
     Indication: HYPERCHOLESTEROLAEMIA
     Dosage: UNK, QD
     Route: 048
     Dates: start: 2000
  4. FENOFIBRIC ACID. [Suspect]
     Active Substance: FENOFIBRIC ACID
     Indication: HYPERCHOLESTEROLAEMIA
     Dosage: 135 MG MILLIGRAM(S), QD
     Route: 048
     Dates: start: 2000, end: 20170106
  5. EYLEA [Suspect]
     Active Substance: AFLIBERCEPT
     Indication: DIABETIC RETINAL OEDEMA
     Dosage: MASKED
     Route: 031
     Dates: start: 20161010
  6. MONTELUKAST SODIUM. [Concomitant]
     Active Substance: MONTELUKAST SODIUM
     Indication: ASTHMA
     Dosage: 10 MG MILLIGRAM(S), QD
     Route: 048
     Dates: start: 20161130
  7. LOSARTAN POTASSIUM. [Concomitant]
     Active Substance: LOSARTAN POTASSIUM
     Indication: HYPERCHOLESTEROLAEMIA
     Dosage: 100 MG MILLIGRAM(S), UNK
     Route: 048
     Dates: start: 2000, end: 20170106
  8. METOPROLOL TARTRATE. [Suspect]
     Active Substance: METOPROLOL TARTRATE
     Indication: HYPERTENSION
     Dosage: 100 MG MILLIGRAM(S), QD
     Route: 048
     Dates: start: 2000
  9. ASA [Concomitant]
     Active Substance: ASPIRIN
     Indication: ANTICOAGULANT THERAPY
     Dosage: 81 MG MILLIGRAM(S), QD
     Route: 048
     Dates: start: 2000, end: 20170106
  10. PULMOCORTISON INY [Concomitant]
     Indication: ASTHMA
     Dosage: 180 MG MILLIGRAM(S), BID
     Route: 055
     Dates: start: 2013
  11. HUMALOG [Suspect]
     Active Substance: INSULIN LISPRO
     Indication: DIABETES MELLITUS
     Dosage: UNK UNK, TID
     Route: 030
     Dates: start: 2016
  12. TYLENOL [Concomitant]
     Active Substance: ACETAMINOPHEN
     Indication: PAIN
     Dosage: 325 MG MILLIGRAM(S), AS NECESSARY
     Route: 048
     Dates: start: 1974

REACTIONS (1)
  - Renal failure [Recovered/Resolved]

NARRATIVE: CASE EVENT DATE: 20161215
